FAERS Safety Report 12313601 (Version 1)
Quarter: 2016Q2

REPORT INFORMATION
  Report Type: Spontaneous
  Country: TW (occurrence: TW)
  Receive Date: 20160428
  Receipt Date: 20160428
  Transmission Date: 20160815
  Serious: Yes (Other)
  Sender: FDA-Public Use
  Company Number: TW-PFIZER INC-2016226242

PATIENT
  Age: 60 Year
  Sex: Female

DRUGS (1)
  1. LIPITOR [Suspect]
     Active Substance: ATORVASTATIN CALCIUM
     Indication: HYPERLIPIDAEMIA
     Dosage: 0.5 DF, 1X/DAY

REACTIONS (3)
  - Product quality issue [Unknown]
  - Accidental underdose [Unknown]
  - Diabetes mellitus [Unknown]
